FAERS Safety Report 23616199 (Version 1)
Quarter: 2024Q1

REPORT INFORMATION
  Report Type: Spontaneous
  Country: US (occurrence: None)
  Receive Date: 20240308
  Receipt Date: 20240308
  Transmission Date: 20240410
  Serious: No
  Sender: FDA-Public Use
  Company Number: None

PATIENT
  Age: 14 Year
  Sex: Female
  Weight: 81.36 kg

DRUGS (1)
  1. DESMOPRESSIN ACETATE [Suspect]
     Active Substance: DESMOPRESSIN ACETATE
     Indication: Von Willebrand^s disease
     Dates: start: 20240228, end: 20240228

REACTIONS (5)
  - Headache [None]
  - Periorbital swelling [None]
  - Eye pruritus [None]
  - Face oedema [None]
  - Erythema [None]

NARRATIVE: CASE EVENT DATE: 20240228
